FAERS Safety Report 19344828 (Version 1)
Quarter: 2021Q2

REPORT INFORMATION
  Report Type: Other
  Country: IT (occurrence: IT)
  Receive Date: 20210530
  Receipt Date: 20210530
  Transmission Date: 20210717
  Serious: Yes (Hospitalization, Other)
  Sender: FDA-Public Use
  Company Number: IT-CELLTRION INC.-2021IT006927

PATIENT

DRUGS (3)
  1. CABLIVI [Suspect]
     Active Substance: CAPLACIZUMAB-YHDP
     Indication: THROMBOTIC THROMBOCYTOPENIC PURPURA
     Dosage: (PHARMACEUTICAL DOSE FORM: LYOPHILISATE FOR SUSPENSION FOR INJECTION)
     Route: 065
     Dates: start: 2020, end: 2020
  2. RITUXIMAB (UNKNOWN) [Suspect]
     Active Substance: RITUXIMAB
     Indication: THROMBOTIC THROMBOCYTOPENIC PURPURA
  3. CABLIVI [Suspect]
     Active Substance: CAPLACIZUMAB-YHDP
     Dosage: (PHARMACEUTICAL DOSE FORM: LYOPHILISATE FOR SUSPENSION FOR INJECTION)
     Route: 065

REACTIONS (5)
  - Device related infection [Unknown]
  - Thrombotic thrombocytopenic purpura [Unknown]
  - Platelet count decreased [Unknown]
  - Postoperative wound infection [Unknown]
  - Off label use [Unknown]

NARRATIVE: CASE EVENT DATE: 2020
